FAERS Safety Report 8954761 (Version 1)
Quarter: 2012Q4

REPORT INFORMATION
  Report Type: Report from Study
  Country: US (occurrence: US)
  Receive Date: 20121207
  Receipt Date: 20121207
  Transmission Date: 20130627
  Serious: Yes (Other)
  Sender: FDA-Public Use
  Company Number: US-ABBOTT-12P-163-1010674-00

PATIENT
  Age: 58 Year
  Sex: Female

DRUGS (3)
  1. HUMIRA [Suspect]
     Indication: RHEUMATOID ARTHRITIS
     Dates: end: 201208
  2. HUMIRA [Suspect]
     Dates: start: 20121115, end: 20121115
  3. CIMZIA [Concomitant]
     Indication: RHEUMATOID ARTHRITIS
     Dates: start: 20121028, end: 20121110

REACTIONS (3)
  - Transient ischaemic attack [Recovering/Resolving]
  - Cerebrovascular accident [Recovering/Resolving]
  - Hypoaesthesia [Recovered/Resolved]
